FAERS Safety Report 4748218-2 (Version None)
Quarter: 2005Q3

REPORT INFORMATION
  Report Type: 
  Country: None (occurrence: None)
  Receive Date: 20050818
  Receipt Date: 20050804
  Transmission Date: 20060218
  Serious: Yes (Other)
  Sender: FDA-Public Use
  Company Number: 200516252US

PATIENT
  Sex: Female
  Weight: 54.5 kg

DRUGS (9)
  1. LASIX [Suspect]
     Dosage: DOSE: UNKNOWN
     Route: 048
  2. AMBIEN [Suspect]
     Dosage: DOSE: UNKNOWN
     Route: 048
  3. PLAVIX [Suspect]
     Dosage: DOSE: UNKNOWN
     Route: 048
     Dates: start: 20040101
  4. CARAFATE [Suspect]
     Dosage: DOSE: UNKNOWN
     Route: 048
  5. METOCLOPRAMIDE [Suspect]
     Dosage: DOSE: UNKNOWN
     Route: 048
  6. DARVOCET-N 100 [Suspect]
     Dosage: DOSE: UNKNOWN
     Route: 048
  7. MYCELEX [Suspect]
     Dosage: DOSE: UNKNOWN
  8. PROMETHAZINE [Suspect]
     Dosage: DOSE: UNKNOWN
     Route: 048
  9. TIZANIDINE HCL [Suspect]
     Dosage: DOSE: UNKNOWN
     Route: 048

REACTIONS (2)
  - ABDOMINAL DISCOMFORT [None]
  - GASTROINTESTINAL HAEMORRHAGE [None]
